FAERS Safety Report 25580666 (Version 1)
Quarter: 2025Q3

REPORT INFORMATION
  Report Type: Spontaneous
  Country: US (occurrence: US)
  Receive Date: 20250718
  Receipt Date: 20250718
  Transmission Date: 20251021
  Serious: No
  Sender: NOVO NORDISK
  Company Number: US-NOVOPROD-1428632

PATIENT
  Sex: Female

DRUGS (1)
  1. WEGOVY [Suspect]
     Active Substance: SEMAGLUTIDE
     Indication: Weight control
     Route: 058
     Dates: start: 202409, end: 20250220

REACTIONS (6)
  - Restless legs syndrome [Unknown]
  - Urinary tract infection [Unknown]
  - Heart rate increased [Unknown]
  - Diarrhoea [Unknown]
  - Incorrect dose administered by product [Unknown]
  - Device leakage [Unknown]
